FAERS Safety Report 6156864-7 (Version None)
Quarter: 2009Q2

REPORT INFORMATION
  Report Type: 
  Country: None (occurrence: None)
  Receive Date: 20090416
  Receipt Date: 20090414
  Transmission Date: 20091009
  Serious: Yes (Hospitalization)
  Sender: FDA-Public Use
  Company Number: US-BRISTOL-MYERS SQUIBB COMPANY-14588248

PATIENT
  Sex: Female

DRUGS (2)
  1. CYTOXAN [Suspect]
     Dosage: CYTOXAN SOLUTION FOR INFUSION. CYC 4
     Route: 042
  2. TAXOTERE [Suspect]
     Dosage: DOCETAXEL SOLN FOR INFUSION.
     Route: 042

REACTIONS (1)
  - PERICARDIAL EFFUSION [None]
